FAERS Safety Report 6745039-6 (Version None)
Quarter: 2010Q2

REPORT INFORMATION
  Report Type: 
  Country: None (occurrence: None)
  Receive Date: 20100527
  Receipt Date: 20100517
  Transmission Date: 20101027
  Serious: Yes (Other)
  Sender: FDA-Public Use
  Company Number: IT-WATSON-2010-06678

PATIENT
  Age: 8 Year
  Sex: Male

DRUGS (2)
  1. ETOPOSIDE [Suspect]
     Indication: MYELOID LEUKAEMIA
     Dosage: HIGH DOSE
  2. CYTARABINE [Suspect]
     Indication: MYELOID LEUKAEMIA
     Dosage: HIGH DOSE

REACTIONS (2)
  - FUSARIUM INFECTION [None]
  - NEUTROPENIA [None]
